FAERS Safety Report 5613361-2 (Version None)
Quarter: 2008Q1

REPORT INFORMATION
  Report Type: 
  Country: None (occurrence: None)
  Receive Date: 20080129
  Receipt Date: 20080110
  Transmission Date: 20080703
  Serious: Yes (Death)
  Sender: FDA-Public Use
  Company Number: 2008JP000169

PATIENT
  Age: 41 Year
  Sex: Male

DRUGS (3)
  1. PROGRAF [Suspect]
     Indication: BONE MARROW TRANSPLANT
  2. METHOTREXATE [Concomitant]
  3. METHYLPREDNISOLONE [Concomitant]

REACTIONS (3)
  - ANGIOPATHY [None]
  - COMPLICATIONS OF BONE MARROW TRANSPLANT [None]
  - GRAFT VERSUS HOST DISEASE [None]
